FAERS Safety Report 4708768-1 (Version None)
Quarter: 2005Q3

REPORT INFORMATION
  Report Type: 
  Country: None (occurrence: None)
  Receive Date: 20050705
  Receipt Date: 20050627
  Transmission Date: 20060218
  Serious: Yes (Hospitalization)
  Sender: FDA-Public Use
  Company Number: 055-0981-M0000775

PATIENT
  Age: 46 Year
  Sex: Male

DRUGS (4)
  1. CITALOR (ATORVASTATIN) [Suspect]
     Indication: DYSLIPIDAEMIA
     Dosage: 10 MG (10 MG, 1 IN 1 D), ORAL
     Route: 048
     Dates: start: 19991201
  2. CAPTOPRIL [Concomitant]
  3. ASPIRIN [Concomitant]
  4. ADALAT [Concomitant]

REACTIONS (3)
  - ABDOMINAL HERNIA [None]
  - CONDITION AGGRAVATED [None]
  - PAIN [None]
